FAERS Safety Report 15221129 (Version 3)
Quarter: 2018Q3

REPORT INFORMATION
  Report Type: Spontaneous
  Country: IT (occurrence: IT)
  Receive Date: 20180731
  Receipt Date: 20180921
  Transmission Date: 20181010
  Serious: Yes (Hospitalization, Other)
  Sender: FDA-Public Use
  Company Number: IT-GLAXOSMITHKLINE-IT2018GSK135488

PATIENT
  Age: 50 Year
  Sex: Female

DRUGS (2)
  1. NUCALA [Suspect]
     Active Substance: MEPOLIZUMAB
     Indication: ASTHMA
     Dosage: UNK
     Dates: start: 20171228
  2. NUCALA [Suspect]
     Active Substance: MEPOLIZUMAB
     Indication: BRONCHIECTASIS

REACTIONS (7)
  - Bronchitis [Unknown]
  - Tuberculosis [Unknown]
  - Lung infection [Unknown]
  - Emotional distress [Unknown]
  - Oral candidiasis [Unknown]
  - Condition aggravated [Unknown]
  - Rhinitis [Unknown]

NARRATIVE: CASE EVENT DATE: 20180721
